FAERS Safety Report 8573693-5 (Version None)
Quarter: 2012Q3

REPORT INFORMATION
  Report Type: 
  Country: None (occurrence: None)
  Receive Date: 20120806
  Receipt Date: 20120731
  Transmission Date: 20120928
  Serious: Yes (Hospitalization, Other)
  Sender: FDA-Public Use
  Company Number: US-GLAXOSMITHKLINE-A0978226A

PATIENT
  Age: 79 Year
  Sex: Female

DRUGS (5)
  1. CARVEDILOL [Concomitant]
  2. PREDNISONE [Concomitant]
  3. PROMACTA [Suspect]
     Indication: IDIOPATHIC THROMBOCYTOPENIC PURPURA
     Dosage: 50MG PER DAY
     Route: 048
     Dates: start: 20120505, end: 20120510
  4. LEVOTHYROXINE SODIUM [Concomitant]
  5. HYDROCHLOROTHIAZDE TAB [Concomitant]

REACTIONS (5)
  - OEDEMA PERIPHERAL [None]
  - ERYTHEMA [None]
  - GAIT DISTURBANCE [None]
  - PAIN IN EXTREMITY [None]
  - CELLULITIS [None]
